FAERS Safety Report 14794758 (Version 3)
Quarter: 2019Q1

REPORT INFORMATION
  Report Type: Report from Study
  Country: BR (occurrence: BR)
  Receive Date: 20180423
  Receipt Date: 20190117
  Transmission Date: 20190417
  Serious: Yes (Hospitalization, Other)
  Sender: FDA-Public Use
  Company Number: BR-JNJFOC-20180427401

PATIENT
  Sex: Female

DRUGS (4)
  1. ACITRETIN. [Suspect]
     Active Substance: ACITRETIN
     Indication: PSORIASIS
     Route: 065
  2. CYCLOSPORINE. [Suspect]
     Active Substance: CYCLOSPORINE
     Indication: PRODUCT USED FOR UNKNOWN INDICATION
     Route: 065
  3. STELARA [Suspect]
     Active Substance: USTEKINUMAB
     Indication: PSORIASIS
     Route: 058
     Dates: start: 20170807, end: 20180107
  4. STELARA [Suspect]
     Active Substance: USTEKINUMAB
     Indication: PSORIASIS
     Route: 058
     Dates: start: 201810

REACTIONS (10)
  - Cellulitis [Unknown]
  - Retinal disorder [Unknown]
  - Liver injury [Unknown]
  - Renal injury [Unknown]
  - Psoriasis [Recovered/Resolved]
  - Drug ineffective [Unknown]
  - Pneumonia [Unknown]
  - Cardiac disorder [Unknown]
  - Oropharyngeal pain [Unknown]
  - Sinusitis [Unknown]
